FAERS Safety Report 4981109-0 (Version None)
Quarter: 2006Q2

REPORT INFORMATION
  Report Type: 
  Country: None (occurrence: None)
  Receive Date: 20060424
  Receipt Date: 20060413
  Transmission Date: 20061013
  Serious: Yes (Hospitalization)
  Sender: FDA-Public Use
  Company Number: JACFRA2000000709

PATIENT
  Sex: Female
  Weight: 3.75 kg

DRUGS (24)
  1. RISPERDAL [Suspect]
  2. RISPERDAL [Suspect]
  3. RISPERDAL [Suspect]
     Indication: DRUG USE FOR UNKNOWN INDICATION
  4. NOZINAN [Suspect]
  5. NOZINAN [Suspect]
  6. NOZINAN [Suspect]
     Indication: DRUG USE FOR UNKNOWN INDICATION
  7. TRANXENE [Suspect]
  8. TRANXENE [Suspect]
     Indication: DRUG USE FOR UNKNOWN INDICATION
  9. HALDOL [Suspect]
  10. HALDOL [Suspect]
  11. HALDOL [Suspect]
  12. HALDOL [Suspect]
     Indication: DRUG USE FOR UNKNOWN INDICATION
  13. LARGACTIL [Suspect]
     Indication: DRUG USE FOR UNKNOWN INDICATION
  14. DOGMATIL [Suspect]
     Indication: DRUG USE FOR UNKNOWN INDICATION
  15. HEPT-A-MYL [Suspect]
     Indication: DRUG USE FOR UNKNOWN INDICATION
     Dates: end: 20000124
  16. ARTANE [Suspect]
     Indication: DRUG USE FOR UNKNOWN INDICATION
     Dates: start: 20000701
  17. RIVOTRIL [Suspect]
     Indication: DRUG USE FOR UNKNOWN INDICATION
  18. VALIUM [Suspect]
     Indication: DRUG USE FOR UNKNOWN INDICATION
     Dates: start: 20000701
  19. LEPTICUR [Suspect]
     Indication: DRUG USE FOR UNKNOWN INDICATION
     Dates: end: 20000124
  20. GINKOR FORT [Suspect]
  21. GINKOR FORT [Suspect]
  22. GINKOR FORT [Suspect]
     Indication: DRUG USE FOR UNKNOWN INDICATION
  23. TERCIAN [Suspect]
     Indication: DRUG USE FOR UNKNOWN INDICATION
     Dates: start: 20000701
  24. PLACEBO INSTEAD OF LEPTICUR [Suspect]
     Indication: DRUG USE FOR UNKNOWN INDICATION

REACTIONS (13)
  - COMPLICATIONS OF MATERNAL EXPOSURE TO THERAPEUTIC DRUGS [None]
  - DRUG EXPOSURE DURING PREGNANCY [None]
  - ELECTROENCEPHALOGRAM ABNORMAL [None]
  - FEEDING DISORDER NEONATAL [None]
  - GASTROINTESTINAL DISORDER [None]
  - HYPOGLYCAEMIA [None]
  - HYPOTONIA NEONATAL [None]
  - LEUKOPENIA [None]
  - MACROSOMIA [None]
  - NEONATAL DISORDER [None]
  - PREMATURE BABY [None]
  - SOMNOLENCE NEONATAL [None]
  - VASODILATATION [None]
